FAERS Safety Report 21646864 (Version 1)
Quarter: 2022Q4

REPORT INFORMATION
  Report Type: Spontaneous
  Country: FR (occurrence: FR)
  Receive Date: 20221127
  Receipt Date: 20221127
  Transmission Date: 20230113
  Serious: Yes (Hospitalization)
  Sender: FDA-Public Use
  Company Number: None

PATIENT
  Age: 74 Year
  Sex: Male

DRUGS (3)
  1. ALLOPURINOL [Suspect]
     Active Substance: ALLOPURINOL
     Indication: Gout
     Dosage: UNIT DOSE :  300 MG  , FREQUENCY TIME : 1 DAY , DURATION : 5 YEARS
     Dates: start: 201611, end: 20220621
  2. RITUXIMAB [Suspect]
     Active Substance: RITUXIMAB
     Indication: Chronic lymphocytic leukaemia
     Dosage: RITUXIMAB ((MAMMAL/HAMSTER/CHO CELLS)) , UNIT DOSE : 100 MG   , FREQUENCY TIME : 1 MONTH  , DURATION
     Dates: start: 20220407, end: 20220608
  3. CHLORAMBUCIL [Suspect]
     Active Substance: CHLORAMBUCIL
     Indication: Chronic lymphocytic leukaemia
     Dosage: UNIT DOSE : 4 MG  , FREQUENCY TIME : 1 DAY , DURATION : 6 MONTH
     Dates: start: 202112, end: 20220622

REACTIONS (1)
  - Bone marrow failure [Not Recovered/Not Resolved]

NARRATIVE: CASE EVENT DATE: 20220621
